FAERS Safety Report 14310609 (Version 4)
Quarter: 2022Q4

REPORT INFORMATION
  Report Type: Spontaneous
  Country: SE (occurrence: SE)
  Receive Date: 20171220
  Receipt Date: 20221104
  Transmission Date: 20230113
  Serious: Yes (Life-Threatening, Hospitalization, Other)
  Sender: FDA-Public Use
  Company Number: SE-EMA-DD-20171204-DDEVHUMANWT-175923

PATIENT
  Age: 51 Year
  Sex: Female

DRUGS (10)
  1. CITALOPRAM [Suspect]
     Active Substance: CITALOPRAM HYDROBROMIDE
     Indication: Product used for unknown indication
     Dosage: UNK
     Route: 048
  2. CITALOPRAM [Suspect]
     Active Substance: CITALOPRAM HYDROBROMIDE
     Indication: Suicide attempt
     Dosage: LOW TO MODERATE DOSES
     Route: 065
  3. NIFEDIPINE [Suspect]
     Active Substance: NIFEDIPINE
     Indication: Product used for unknown indication
     Dosage: 100 MG, UNK
     Route: 048
  4. NIFEDIPINE [Suspect]
     Active Substance: NIFEDIPINE
     Indication: Suicide attempt
     Dosage: UNK
     Route: 065
  5. ACETAMINOPHEN [Suspect]
     Active Substance: ACETAMINOPHEN
     Indication: Product used for unknown indication
     Dosage: LOW TO MODERATE DOSES
     Route: 048
  6. ACETAMINOPHEN [Suspect]
     Active Substance: ACETAMINOPHEN
     Indication: Suicide attempt
  7. ZOPICLONE [Suspect]
     Active Substance: ZOPICLONE
     Indication: Product used for unknown indication
     Dosage: LOW TO MODERATE DOSES
     Route: 048
  8. ZOPICLONE [Suspect]
     Active Substance: ZOPICLONE
     Indication: Suicide attempt
     Dosage: UNK
     Route: 065
  9. PROPRANOLOL HYDROCHLORIDE [Suspect]
     Active Substance: PROPRANOLOL HYDROCHLORIDE
     Indication: Product used for unknown indication
     Dosage: 400 MG, UNK
     Route: 048
  10. PROPRANOLOL HYDROCHLORIDE [Suspect]
     Active Substance: PROPRANOLOL HYDROCHLORIDE
     Indication: Suicide attempt
     Dosage: APPROXIMATELY 400 MG
     Route: 065

REACTIONS (14)
  - Seizure [Recovered/Resolved]
  - Overdose [Unknown]
  - Hypertension [Unknown]
  - Peripheral vascular disorder [Recovered/Resolved]
  - Myocardial depression [Recovered/Resolved]
  - Alcohol interaction [Recovered/Resolved]
  - Toxicity to various agents [Recovered/Resolved]
  - Anuria [Recovered/Resolved]
  - Peripheral coldness [Recovered/Resolved]
  - Suicide attempt [Recovered/Resolved]
  - Hypotension [Recovered/Resolved]
  - Heart rate decreased [Recovered/Resolved]
  - Intentional overdose [Recovered/Resolved]
  - Blood glucose decreased [Recovered/Resolved]
